FAERS Safety Report 14651400 (Version 1)
Quarter: 2018Q1

REPORT INFORMATION
  Report Type: Spontaneous
  Country: US (occurrence: US)
  Receive Date: 20180316
  Receipt Date: 20180316
  Transmission Date: 20180509
  Serious: No
  Sender: FDA-Public Use
  Company Number: None

PATIENT
  Age: 64 Year
  Sex: Female
  Weight: 60.75 kg

DRUGS (9)
  1. CORTISONE [Concomitant]
     Active Substance: CORTISONE\HYDROCORTISONE
  2. CALCIUM CITRATE+D [Concomitant]
  3. MULTIVITAMIN [Concomitant]
     Active Substance: VITAMINS
  4. CLONAZEPAM. [Concomitant]
     Active Substance: CLONAZEPAM
  5. MELATONIN [Concomitant]
     Active Substance: MELATONIN
  6. GABAPENTIN. [Concomitant]
     Active Substance: GABAPENTIN
  7. ESTROGEN [Concomitant]
     Active Substance: ESTROGENS
  8. AZO [Concomitant]
     Active Substance: PHENAZOPYRIDINE HYDROCHLORIDE
  9. METOPROLOL. [Suspect]
     Active Substance: METOPROLOL
     Indication: HYPERTENSION
     Dosage: ?          QUANTITY:180 TABLET(S);?
     Route: 048

REACTIONS (3)
  - Headache [None]
  - Ear congestion [None]
  - Nasal congestion [None]

NARRATIVE: CASE EVENT DATE: 20180106
